FAERS Safety Report 23991201 (Version 1)
Quarter: 2024Q2

REPORT INFORMATION
  Report Type: Spontaneous
  Country: CN (occurrence: CN)
  Receive Date: 20240619
  Receipt Date: 20240619
  Transmission Date: 20240716
  Serious: Yes (Other)
  Sender: FDA-Public Use
  Company Number: CN-PFIZER INC-PV202400078927

PATIENT
  Age: 81 Year
  Sex: Male
  Weight: 60 kg

DRUGS (3)
  1. PAXLOVID [Suspect]
     Active Substance: NIRMATRELVIR\RITONAVIR
     Indication: COVID-19 treatment
     Dosage: [NIRMATRELVIR 300 MG]/[RITONAVIR 100 MG]; 2X/DAY (EVERY 12 HOURS)
     Route: 048
     Dates: start: 20240601, end: 20240609
  2. OLUMIANT [Suspect]
     Active Substance: BARICITINIB
     Indication: COVID-19
     Dosage: 4 MG, 1X/DAY
     Route: 048
     Dates: start: 20240604, end: 20240609
  3. OLUMIANT [Suspect]
     Active Substance: BARICITINIB
     Indication: Antiinflammatory therapy

REACTIONS (3)
  - Transaminases increased [Unknown]
  - Drug-induced liver injury [Unknown]
  - Off label use [Unknown]

NARRATIVE: CASE EVENT DATE: 20240601
